FAERS Safety Report 5857626-8 (Version None)
Quarter: 2008Q3

REPORT INFORMATION
  Report Type: 
  Country: None (occurrence: None)
  Receive Date: 20080825
  Receipt Date: 20080825
  Transmission Date: 20090109
  Serious: Yes (Other)
  Sender: FDA-Public Use
  Company Number: None

PATIENT
  Age: 43 Year
  Sex: Female
  Weight: 98.8842 kg

DRUGS (1)
  1. DIFFERIN [Suspect]
     Indication: ACNE
     Dosage: THIN LAYER 1 TIME DAILY CUTANEOUS
     Route: 003
     Dates: start: 20080415, end: 20080823

REACTIONS (1)
  - RASH PRURITIC [None]
